FAERS Safety Report 24076075 (Version 1)
Quarter: 2024Q3

REPORT INFORMATION
  Report Type: Spontaneous
  Country: GB (occurrence: GB)
  Receive Date: 20240710
  Receipt Date: 20240710
  Transmission Date: 20241016
  Serious: Yes (Other)
  Sender: MERCK
  Company Number: None

PATIENT
  Sex: Female

DRUGS (1)
  1. RALTEGRAVIR POTASSIUM [Suspect]
     Active Substance: RALTEGRAVIR POTASSIUM
     Indication: Prophylaxis
     Dosage: UNK
     Route: 048

REACTIONS (1)
  - Skin lesion [Not Recovered/Not Resolved]
